FAERS Safety Report 21355995 (Version 1)
Quarter: 2022Q3

REPORT INFORMATION
  Report Type: Spontaneous
  Country: DE (occurrence: DE)
  Receive Date: 20220920
  Receipt Date: 20220920
  Transmission Date: 20221027
  Serious: Yes (Hospitalization, Other)
  Sender: FDA-Public Use
  Company Number: DE-SCALL-2022-DE-000133

PATIENT
  Age: 77 Year
  Sex: Male
  Weight: 60 kg

DRUGS (12)
  1. DUTASTERIDE\TAMSULOSIN HYDROCHLORIDE [Suspect]
     Active Substance: DUTASTERIDE\TAMSULOSIN HYDROCHLORIDE
     Indication: Product used for unknown indication
     Dosage: 0.4 MG, QD/0.5 MG, QD
     Route: 048
  2. CALCIUM CHLORIDE\POTASSIUM CHLORIDE\SODIUM ACETATE [Concomitant]
     Active Substance: CALCIUM CHLORIDE\POTASSIUM CHLORIDE\SODIUM ACETATE
     Route: 065
  3. SULFAMETHOXAZOLE\TRIMETHOPRIM [Concomitant]
     Active Substance: SULFAMETHOXAZOLE\TRIMETHOPRIM
  4. BENSERAZIDE\LEVODOPA [Concomitant]
     Active Substance: BENSERAZIDE\LEVODOPA
  5. METOPROLOL [Suspect]
     Active Substance: METOPROLOL
     Dosage: 47.5 MG, QD, 47.5 MG 0-0-1-0, RETARD-TABLETTEN
     Route: 048
  6. RIVASTIGMINE [Suspect]
     Active Substance: RIVASTIGMINE
     Dosage: 9.5 MG, QD 9.5 MG/24H ALLE 2D, PFLASTER
     Route: 061
  7. PANTOPRAZOLE SODIUM [Concomitant]
     Active Substance: PANTOPRAZOLE SODIUM
     Route: 061
  8. FEBUXOSTAT [Concomitant]
     Active Substance: FEBUXOSTAT
  9. EDOXABAN [Concomitant]
     Active Substance: EDOXABAN
  10. ENOXAPARIN [Concomitant]
     Active Substance: ENOXAPARIN
  11. ATORVASTATIN [Concomitant]
     Active Substance: ATORVASTATIN
  12. MOVICOL [Concomitant]
     Active Substance: POLYETHYLENE GLYCOL 3350\POTASSIUM CHLORIDE\SODIUM BICARBONATE\SODIUM CHLORIDE
     Route: 048

REACTIONS (3)
  - Urinary tract infection [Unknown]
  - Tachypnoea [Unknown]
  - Loss of consciousness [Unknown]
